FAERS Safety Report 18853601 (Version 1)
Quarter: 2021Q1

REPORT INFORMATION
  Report Type: Spontaneous
  Country: US (occurrence: US)
  Receive Date: 20210205
  Receipt Date: 20210205
  Transmission Date: 20210420
  Serious: No
  Sender: FDA-Public Use
  Company Number: US-009507513-2102USA000556

PATIENT
  Sex: Female

DRUGS (2)
  1. PREGNYL [Suspect]
     Active Substance: CHORIOGONADOTROPIN ALFA
     Indication: OVULATION INDUCTION
     Dosage: UNK
     Dates: start: 20210129
  2. STERILE DILUENT (WATER) [Suspect]
     Active Substance: WATER
     Indication: OVULATION INDUCTION
     Dosage: UNK
     Dates: start: 20210129

REACTIONS (2)
  - Maternal exposure during breast feeding [Unknown]
  - No adverse event [Unknown]

NARRATIVE: CASE EVENT DATE: 20210129
